FAERS Safety Report 23451133 (Version 1)
Quarter: 2024Q1

REPORT INFORMATION
  Report Type: Spontaneous
  Country: CN (occurrence: CN)
  Receive Date: 20240129
  Receipt Date: 20240129
  Transmission Date: 20240409
  Serious: Yes (Hospitalization)
  Sender: FDA-Public Use
  Company Number: CN-PFIZER INC-PV202400011734

PATIENT
  Age: 10 Year
  Sex: Male
  Weight: 44.2 kg

DRUGS (1)
  1. ZITHROMAX [Suspect]
     Active Substance: AZITHROMYCIN DIHYDRATE
     Indication: Pneumonia
     Dosage: 0.4 G, 1X/DAY
     Route: 041
     Dates: start: 20231228, end: 20240101

REACTIONS (3)
  - Hepatic function abnormal [Recovering/Resolving]
  - Henoch-Schonlein purpura [Unknown]
  - Off label use [Unknown]

NARRATIVE: CASE EVENT DATE: 20231228
